FAERS Safety Report 7585756-1 (Version None)
Quarter: 2011Q2

REPORT INFORMATION
  Report Type: 
  Country: None (occurrence: None)
  Receive Date: 20110624
  Receipt Date: 20110610
  Transmission Date: 20111010
  Serious: Yes (Death, Hospitalization)
  Sender: FDA-Public Use
  Company Number: 2011MA007083

PATIENT
  Age: 42 Year
  Sex: Male

DRUGS (2)
  1. INH [Concomitant]
  2. RIFAMPIN [Suspect]
     Indication: TUBERCULOSIS
     Dosage: 450 MG

REACTIONS (12)
  - NAUSEA [None]
  - COMA [None]
  - HEPATITIS FULMINANT [None]
  - HYPERAMMONAEMIA [None]
  - HAEMORRHAGIC DIATHESIS [None]
  - ALTERED STATE OF CONSCIOUSNESS [None]
  - VOMITING [None]
  - HYPERBILIRUBINAEMIA [None]
  - HYPERVENTILATION [None]
  - ASTERIXIS [None]
  - ANXIETY [None]
  - JAUNDICE [None]
